FAERS Safety Report 4784786-2 (Version None)
Quarter: 2005Q3

REPORT INFORMATION
  Report Type: 
  Country: None (occurrence: None)
  Receive Date: 20050930
  Receipt Date: 20050923
  Transmission Date: 20060218
  Serious: Yes (Other)
  Sender: FDA-Public Use
  Company Number: PHBS2005PT14161

PATIENT
  Age: 60 Year
  Sex: Male

DRUGS (5)
  1. ZOMETA [Suspect]
     Indication: MULTIPLE MYELOMA
     Dosage: 4 MG, QMO
     Route: 042
     Dates: start: 20030601, end: 20050701
  2. Z-DEXA [Concomitant]
  3. DCEP [Concomitant]
  4. THALIDOMIDE [Concomitant]
  5. DEXAMETHASONE [Concomitant]

REACTIONS (4)
  - ACTINOMYCOSIS [None]
  - JAW DISORDER [None]
  - OSTEOMYELITIS [None]
  - SURGERY [None]
